FAERS Safety Report 7867587-8 (Version None)
Quarter: 2011Q4

REPORT INFORMATION
  Report Type: 
  Country: None (occurrence: None)
  Receive Date: 20111028
  Receipt Date: 20111020
  Transmission Date: 20120403
  Serious: Yes (Other)
  Sender: FDA-Public Use
  Company Number: PHHY2009VE49255

PATIENT
  Sex: Female

DRUGS (10)
  1. NOLVADEX [Concomitant]
  2. MAGNESIUM [Concomitant]
  3. VITAMIN TAB [Concomitant]
  4. ZOLEDRONOC ACID [Suspect]
     Indication: OSTEOPOROSIS
     Dosage: 5 MG PER YEAR
     Route: 042
     Dates: start: 20070701
  5. CALCIUM CARBONATE [Concomitant]
     Route: 048
  6. ANTIALLERGIC AGENTS [Concomitant]
  7. GLUCOSAMINE [Concomitant]
  8. PLAVIX [Concomitant]
     Dosage: 1 DF, QD
     Route: 048
     Dates: start: 20060101
  9. FOSAMAX [Concomitant]
     Route: 048
  10. ZOLEDRONOC ACID [Suspect]
     Dosage: 5 MG/YEAR
     Route: 042
     Dates: start: 20090310

REACTIONS (16)
  - LIGAMENT SPRAIN [None]
  - ARTHROPATHY [None]
  - BONE PAIN [None]
  - PYREXIA [None]
  - ARTHRALGIA [None]
  - BACK PAIN [None]
  - BALANCE DISORDER [None]
  - NERVOUS SYSTEM DISORDER [None]
  - MUSCULOSKELETAL CHEST PAIN [None]
  - MALAISE [None]
  - FALL [None]
  - SOMNOLENCE [None]
  - ABASIA [None]
  - MYALGIA [None]
  - LIMB DISCOMFORT [None]
  - CHILLS [None]
